FAERS Safety Report 9121347 (Version 1)
Quarter: 2013Q1

REPORT INFORMATION
  Report Type: Spontaneous
  Country: US (occurrence: US)
  Receive Date: 20130225
  Receipt Date: 20130225
  Transmission Date: 20140127
  Serious: No
  Sender: FDA-Public Use
  Company Number: US-009507513-1302USA011008

PATIENT
  Sex: Female

DRUGS (2)
  1. JANUVIA [Suspect]
  2. METFORMIN [Concomitant]

REACTIONS (1)
  - Back pain [Not Recovered/Not Resolved]
